FAERS Safety Report 8596400-9 (Version None)
Quarter: 2012Q3

REPORT INFORMATION
  Report Type: 
  Country: None (occurrence: None)
  Receive Date: 20120815
  Receipt Date: 20120806
  Transmission Date: 20120928
  Serious: Yes (Other)
  Sender: FDA-Public Use
  Company Number: US-ASTRAZENECA-2011SE71006

PATIENT
  Age: 72 Year
  Sex: Female
  Weight: 82.1 kg

DRUGS (22)
  1. LISINOPRIL [Suspect]
     Route: 048
  2. VALIUM [Concomitant]
     Route: 048
  3. LIPITOR [Concomitant]
     Route: 048
  4. FUROSEMIDE [Concomitant]
     Route: 048
  5. WELLBUTRIN SR [Concomitant]
     Route: 048
  6. ALLOPURINOL [Concomitant]
     Route: 048
  7. ALBUTEROL SULFATE [Concomitant]
     Route: 048
  8. OXYCODONE HCL AND ACETAMINOPHEN [Concomitant]
  9. VERAPAMIL HCL [Concomitant]
     Dosage: 1 AND 1/2 TABLET EVERY MORNING WITH FOOD
     Route: 048
  10. COLCHICINE [Concomitant]
     Route: 048
  11. CALAN SR [Concomitant]
     Route: 048
  12. CITALOPRAM HYDROBROMIDE [Concomitant]
     Route: 048
  13. FORADIL [Concomitant]
     Route: 055
  14. ASPIRIN [Concomitant]
     Route: 048
  15. OXYCODONE HCL AND ACETAMINOPHEN [Concomitant]
  16. TOPROL-XL [Suspect]
     Route: 048
  17. PROVENTIL-HFA [Concomitant]
     Dosage: 108 (90 BASE) MCG/ACT 2 PUFFS AS NEEDED INHALATION EVERY 4 HRS
  18. CELEXA [Concomitant]
     Route: 048
  19. ATENOLOL [Suspect]
     Route: 065
  20. SYMBICORT [Suspect]
     Dosage: 80/4.5 MCG TWO PUFFS BID
     Route: 055
  21. LASIX [Concomitant]
     Route: 048
  22. VENTOLIN HFA [Concomitant]
     Dosage: 108 (90 BASE) MCG/ACT 2 PUFFS AS NEEDED INHALATION EVERY 4 HRS

REACTIONS (21)
  - OSTEOARTHRITIS [None]
  - ARTERIOSCLEROSIS CORONARY ARTERY [None]
  - LUNG NEOPLASM [None]
  - ASTHMA [None]
  - ANGINA PECTORIS [None]
  - ARTHRALGIA [None]
  - CHRONIC OBSTRUCTIVE PULMONARY DISEASE [None]
  - ARTHRITIS [None]
  - CONTUSION [None]
  - GASTROOESOPHAGEAL REFLUX DISEASE [None]
  - FALL [None]
  - PAIN [None]
  - JOINT DISLOCATION [None]
  - ESSENTIAL HYPERTENSION [None]
  - HUMERUS FRACTURE [None]
  - ANXIETY [None]
  - UPPER LIMB FRACTURE [None]
  - HYPERLIPIDAEMIA [None]
  - GOUT [None]
  - LIMB INJURY [None]
  - DEPRESSION [None]
